FAERS Safety Report 10914099 (Version 1)
Quarter: 2015Q1

REPORT INFORMATION
  Report Type: Spontaneous
  Country: US (occurrence: US)
  Receive Date: 20150313
  Receipt Date: 20150313
  Transmission Date: 20150721
  Serious: Yes (Other)
  Sender: FDA-Public Use
  Company Number: US-PFIZER INC-2015086769

PATIENT

DRUGS (6)
  1. DILANTIN [Suspect]
     Active Substance: PHENYTOIN
     Dosage: UNK
  2. TOPAMAX [Suspect]
     Active Substance: TOPIRAMATE
     Dosage: UNK
  3. KEPPRA [Suspect]
     Active Substance: LEVETIRACETAM
     Dosage: UNK
  4. DEPAKOTE [Suspect]
     Active Substance: DIVALPROEX SODIUM
     Dosage: A MID- DAY DOSE
  5. VIMPAT [Suspect]
     Active Substance: LACOSAMIDE
     Dosage: UNK
  6. TEGRETOL [Suspect]
     Active Substance: CARBAMAZEPINE
     Dosage: UNK

REACTIONS (5)
  - Diplopia [Unknown]
  - Nephrolithiasis [Unknown]
  - Electroencephalogram abnormal [Unknown]
  - Gingival disorder [Unknown]
  - Bone density decreased [Unknown]
